FAERS Safety Report 15120393 (Version 1)
Quarter: 2018Q3

REPORT INFORMATION
  Report Type: Spontaneous
  Country: JP (occurrence: JP)
  Receive Date: 20180709
  Receipt Date: 20180709
  Transmission Date: 20181010
  Serious: Yes (Other)
  Sender: FDA-Public Use
  Company Number: JP-GLAXOSMITHKLINE-JP2018JPN116972

PATIENT
  Age: 8 Decade
  Sex: Male

DRUGS (7)
  1. EPIVIR [Suspect]
     Active Substance: LAMIVUDINE
     Dosage: 75 MG, 1D
     Route: 048
  2. ZIAGEN [Suspect]
     Active Substance: ABACAVIR SULFATE
     Indication: HIV INFECTION
     Dosage: 600 MG, 1D
     Route: 048
  3. EPZICOM [Suspect]
     Active Substance: ABACAVIR SULFATE\LAMIVUDINE
     Indication: HIV INFECTION
     Dosage: UNK
     Route: 048
  4. SANILVUDINE [Concomitant]
     Active Substance: STAVUDINE
     Indication: HIV INFECTION
     Dosage: 20 MG, 1D
  5. KALETRA [Concomitant]
     Active Substance: LOPINAVIR\RITONAVIR
     Indication: HIV INFECTION
     Dosage: 6 DF, 1D
  6. EPIVIR [Suspect]
     Active Substance: LAMIVUDINE
     Indication: HIV INFECTION
     Dosage: 300 MG, 1D
     Route: 048
  7. ISENTRESS [Concomitant]
     Active Substance: RALTEGRAVIR POTASSIUM
     Indication: HIV INFECTION
     Dosage: 800 MG, 1D

REACTIONS (2)
  - Chronic kidney disease [Unknown]
  - Renal impairment [Unknown]
